FAERS Safety Report 9596518 (Version 2)
Quarter: 2013Q4

REPORT INFORMATION
  Report Type: Report from Study
  Country: US (occurrence: US)
  Receive Date: 20131004
  Receipt Date: 20131004
  Transmission Date: 20140711
  Serious: Yes (Hospitalization)
  Sender: FDA-Public Use
  Company Number: US-ABBVIE-13P-163-1106003-00

PATIENT
  Sex: Female
  Weight: 61.29 kg

DRUGS (5)
  1. HUMIRA [Suspect]
     Indication: CROHN^S DISEASE
     Dates: start: 200905, end: 20130316
  2. 6-MP [Concomitant]
     Indication: CROHN^S DISEASE
     Route: 048
  3. NEXIUM [Concomitant]
     Indication: DYSPEPSIA
  4. NEXIUM [Concomitant]
     Indication: NAUSEA
  5. ZOFRAN [Concomitant]
     Indication: NAUSEA
     Dosage: Q8HOUR PRN
     Route: 048

REACTIONS (9)
  - Gingival ulceration [Recovered/Resolved]
  - Crohn^s disease [Recovered/Resolved]
  - Decreased appetite [Recovered/Resolved]
  - Back pain [Recovered/Resolved]
  - Insomnia [Recovered/Resolved]
  - Tonsillar hypertrophy [Recovered/Resolved]
  - Eye inflammation [Recovered/Resolved]
  - Oesophageal ulcer [Recovered/Resolved]
  - Drug ineffective [Not Recovered/Not Resolved]
